FAERS Safety Report 15694782 (Version 2)
Quarter: 2018Q4

REPORT INFORMATION
  Report Type: Spontaneous
  Country: US (occurrence: US)
  Receive Date: 20181206
  Receipt Date: 20181217
  Transmission Date: 20190205
  Serious: No
  Sender: FDA-Public Use
  Company Number: US-PFIZER INC-2016374806

PATIENT
  Age: 67 Year
  Sex: Male
  Weight: 78.5 kg

DRUGS (4)
  1. ALPRAZOLAM. [Suspect]
     Active Substance: ALPRAZOLAM
     Indication: ANXIETY
     Dosage: 1 MG ONE AT NIGHT
  2. ALPRAZOLAM. [Suspect]
     Active Substance: ALPRAZOLAM
     Indication: STRESS
     Dosage: 2 MG, 1X/DAY [AT BEDTIME NIGHTLY]
     Route: 048
  3. ALPRAZOLAM. [Suspect]
     Active Substance: ALPRAZOLAM
     Indication: CHRONIC OBSTRUCTIVE PULMONARY DISEASE
  4. ALPRAZOLAM. [Suspect]
     Active Substance: ALPRAZOLAM
     Indication: SLEEP DISORDER

REACTIONS (8)
  - Weight decreased [Recovering/Resolving]
  - Insomnia [Unknown]
  - Dehydration [Unknown]
  - Metabolic disorder [Unknown]
  - Product dose omission [Unknown]
  - Blood magnesium decreased [Unknown]
  - Muscle atrophy [Unknown]
  - Withdrawal syndrome [Recovered/Resolved]
